FAERS Safety Report 6804090-8 (Version None)
Quarter: 2010Q2

REPORT INFORMATION
  Report Type: 
  Country: None (occurrence: None)
  Receive Date: 20100628
  Receipt Date: 20061023
  Transmission Date: 20101027
  Serious: Yes (Other)
  Sender: FDA-Public Use
  Company Number: US-PFIZER INC-2006091516

PATIENT
  Age: 53 Year
  Sex: Female
  Weight: 53.98 kg

DRUGS (9)
  1. SUTENT [Suspect]
     Indication: METASTATIC RENAL CELL CARCINOMA
     Dates: start: 20060618
  2. OXYCONTIN [Concomitant]
  3. OXYCODONE HCL [Concomitant]
     Dosage: EVERY 2 TO 3 HOURS
  4. ARANESP [Concomitant]
     Dosage: 1 EVERY 2 WEEKS
  5. RITALIN - SLOW RELEASE [Concomitant]
  6. LEXAPRO [Concomitant]
  7. LOPRESSOR [Concomitant]
  8. BENICAR [Concomitant]
  9. IRON [Concomitant]
     Route: 048

REACTIONS (4)
  - GLOSSODYNIA [None]
  - OEDEMA PERIPHERAL [None]
  - RASH ERYTHEMATOUS [None]
  - SKIN EXFOLIATION [None]
